FAERS Safety Report 23544848 (Version 1)
Quarter: 2024Q1

REPORT INFORMATION
  Report Type: Spontaneous
  Country: US (occurrence: None)
  Receive Date: 20240219
  Receipt Date: 20240219
  Transmission Date: 20240410
  Serious: Yes (Hospitalization)
  Sender: FDA-Public Use
  Company Number: None

PATIENT
  Sex: Male

DRUGS (3)
  1. CYCLOPHOSPHAMIDE [Suspect]
     Active Substance: CYCLOPHOSPHAMIDE
     Indication: Chronic hepatitis B
     Dosage: FREQUENCY : DAILY;?
     Route: 048
     Dates: start: 202401
  2. ENTECAVIR [Suspect]
     Active Substance: ENTECAVIR
     Dosage: OTHER FREQUENCY : EVERY THIRD DAY;?
     Route: 048
     Dates: start: 202401
  3. FERROUS SULFATE [Concomitant]
     Active Substance: FERROUS SULFATE

REACTIONS (1)
  - Hospitalisation [None]
